FAERS Safety Report 9125230 (Version 3)
Quarter: 2015Q2

REPORT INFORMATION
  Report Type: Report from Study
  Country: DE (occurrence: DE)
  Receive Date: 20130227
  Receipt Date: 20150403
  Transmission Date: 20150821
  Serious: Yes (Hospitalization, Other)
  Sender: FDA-Public Use
  Company Number: DE-GILEAD-2013-0069782

PATIENT
  Age: 79 Year
  Sex: Female
  Weight: 61 kg

DRUGS (17)
  1. CANEPHRON                          /07490501/ [Concomitant]
     Indication: URINARY TRACT INFECTION
     Dosage: 57 MG, QD
     Route: 048
     Dates: start: 201210
  2. ISICOM [Concomitant]
     Active Substance: CARBIDOPA\LEVODOPA
     Indication: PARKINSON^S DISEASE
     Dosage: 37.5 MG, QD
     Route: 048
     Dates: start: 2010
  3. SELEGILIN [Concomitant]
     Active Substance: SELEGILINE
     Indication: PARKINSON^S DISEASE
     Dosage: 10 MG, QD
     Route: 048
     Dates: start: 2010
  4. RISEDRONATE SODIUM. [Concomitant]
     Active Substance: RISEDRONATE SODIUM
     Indication: OSTEOPOROSIS
     Dosage: 35 MG, Q1WK
     Route: 048
     Dates: start: 2010
  5. METOPROLOL [Concomitant]
     Active Substance: METOPROLOL
     Indication: HYPERTENSION
     Dosage: 200 MG, QD
     Route: 048
     Dates: start: 2007
  6. ASPIRIN. [Concomitant]
     Active Substance: ASPIRIN
     Indication: CORONARY ARTERY DISEASE
     Dosage: 100 MG, QD
     Route: 048
     Dates: start: 20010308
  7. BLINDED RANOLAZINE [Suspect]
     Active Substance: RANOLAZINE
     Indication: ANGINA PECTORIS
     Dosage: 375 MG, BID
     Route: 048
     Dates: start: 20121220, end: 20130103
  8. PLACEBO [Suspect]
     Active Substance: UNSPECIFIED INGREDIENT
     Dosage: 750 MG, BID
     Route: 048
     Dates: start: 20130117, end: 20130218
  9. SIMVASTATIN. [Concomitant]
     Active Substance: SIMVASTATIN
     Indication: CORONARY ARTERY DISEASE
     Dosage: 10 MG, QD
     Route: 048
     Dates: start: 200706
  10. COLECALCIFEROL [Concomitant]
     Active Substance: CHOLECALCIFEROL
     Indication: OSTEOPOROSIS
     Dosage: 20000 DF, Q1MONTH
     Route: 048
     Dates: start: 2010
  11. EDETATE DISODIUM [Concomitant]
     Active Substance: EDETATE DISODIUM
     Indication: DRY EYE
     Dosage: 37.5 MG, QD
     Dates: start: 2010
  12. PLACEBO [Suspect]
     Active Substance: UNSPECIFIED INGREDIENT
     Indication: ANGINA PECTORIS
     Dosage: 375 MG, BID
     Route: 048
     Dates: start: 20121220, end: 20130103
  13. BLINDED RANOLAZINE [Suspect]
     Active Substance: RANOLAZINE
     Dosage: 750 MG, BID
     Route: 048
     Dates: start: 20130117, end: 20130218
  14. RAMIPRIL. [Concomitant]
     Active Substance: RAMIPRIL
     Indication: HYPERTENSION
     Dosage: 5 MG, QD
     Route: 048
     Dates: start: 20050527
  15. PLACEBO [Suspect]
     Active Substance: UNSPECIFIED INGREDIENT
     Dosage: 500 MG, BID
     Route: 048
     Dates: start: 20130103, end: 20130117
  16. BLINDED RANOLAZINE [Suspect]
     Active Substance: RANOLAZINE
     Dosage: 500 MG, BID
     Route: 048
     Dates: start: 20130103, end: 20130117
  17. RUDOTEL [Concomitant]
     Indication: SLEEP DISORDER
     Dosage: 5 MG, QD
     Route: 048
     Dates: start: 2010

REACTIONS (3)
  - Chronic gastritis [Not Recovered/Not Resolved]
  - Vomiting [Recovered/Resolved]
  - Gastrooesophageal reflux disease [Recovered/Resolved]

NARRATIVE: CASE EVENT DATE: 20121225
